FAERS Safety Report 17196241 (Version 1)
Quarter: 2019Q4

REPORT INFORMATION
  Report Type: Spontaneous
  Country: US (occurrence: US)
  Receive Date: 20191202
  Receipt Date: 20191202
  Transmission Date: 20200122
  Serious: Yes (Other)
  Sender: FDA-Public Use
  Company Number: None

PATIENT
  Age: 70 Year
  Sex: Female
  Weight: 90.72 kg

DRUGS (9)
  1. PERCOCET [Concomitant]
     Active Substance: ACETAMINOPHEN\OXYCODONE HYDROCHLORIDE
  2. HRT-MIMVEY [Concomitant]
  3. NABUMETONE. [Concomitant]
     Active Substance: NABUMETONE
  4. ARMOUR THYROID [Concomitant]
     Active Substance: THYROID, PORCINE
  5. GENERIC LYRICA [Concomitant]
     Active Substance: PREGABALIN
  6. PREGABALIN 150MG CAPSULES CIPLA [Suspect]
     Active Substance: PREGABALIN
     Indication: NEUROPATHY PERIPHERAL
     Dosage: ?          QUANTITY:90, 3 BOTTLES;OTHER FREQUENCY:3X;?
     Route: 048
     Dates: start: 20191015
  7. BUPROPION. [Concomitant]
     Active Substance: BUPROPION
  8. LISINOPRIL. [Concomitant]
     Active Substance: LISINOPRIL
  9. ALLOPURINOL. [Concomitant]
     Active Substance: ALLOPURINOL

REACTIONS (2)
  - Drug ineffective [None]
  - Pain [None]

NARRATIVE: CASE EVENT DATE: 20191025
